FAERS Safety Report 22202604 (Version 21)
Quarter: 2023Q4

REPORT INFORMATION
  Report Type: Report from Study
  Country: BR (occurrence: None)
  Receive Date: 20230412
  Receipt Date: 20231005
  Transmission Date: 20240110
  Serious: Yes (Hospitalization)
  Sender: FDA-Public Use
  Company Number: BR-Eisai Medical Research-EC-2023-138073

PATIENT
  Age: 82 Year
  Sex: Male
  Weight: 88 kg

DRUGS (7)
  1. LENVATINIB [Suspect]
     Active Substance: LENVATINIB
     Indication: Renal cell carcinoma
     Dosage: STARTING DOSE 20 MG, FLUCTUATED DOSE
     Route: 048
     Dates: start: 20220608, end: 20230403
  2. BELZUTIFAN [Suspect]
     Active Substance: BELZUTIFAN
     Indication: Renal cell carcinoma
     Dosage: STARTING DOSE 120 MG, FLUCTUATED DOSE
     Route: 048
     Dates: start: 20220608, end: 20230403
  3. PAZOPANIB [Suspect]
     Active Substance: PAZOPANIB
     Indication: Self-medication
     Dosage: DOSE AND FREQUENCY UNKNOWN
     Route: 048
     Dates: start: 20230326, end: 20230404
  4. METFORMIN HYDROCHLORIDE [Concomitant]
     Active Substance: METFORMIN HYDROCHLORIDE
     Dates: start: 202201, end: 20230404
  5. PURAN [Concomitant]
     Active Substance: LEVOTHYROXINE SODIUM
     Dates: start: 20220802
  6. NEUTROFER [FERROUS BISGLYCINATE] [Concomitant]
     Dates: start: 20221015, end: 20230404
  7. LINAGLIPTIN [Concomitant]
     Active Substance: LINAGLIPTIN
     Dates: start: 20221026, end: 20230404

REACTIONS (2)
  - Alanine aminotransferase increased [Recovered/Resolved]
  - Pneumonia [Recovered/Resolved]

NARRATIVE: CASE EVENT DATE: 20230404
